FAERS Safety Report 8270860-5 (Version None)
Quarter: 2012Q2

REPORT INFORMATION
  Report Type: 
  Country: None (occurrence: None)
  Receive Date: 20120410
  Receipt Date: 20120410
  Transmission Date: 20120825
  Serious: Yes (Other)
  Sender: FDA-Public Use
  Company Number: None

PATIENT
  Age: 54 Year
  Sex: Female

DRUGS (2)
  1. DITROPAN [Concomitant]
     Indication: BLADDER DISORDER
  2. OVIDE [Suspect]
     Indication: LICE INFESTATION

REACTIONS (1)
  - POISONING [None]
